FAERS Safety Report 10739437 (Version 7)
Quarter: 2016Q2

REPORT INFORMATION
  Report Type: Spontaneous
  Country: US (occurrence: US)
  Receive Date: 20150126
  Receipt Date: 20160413
  Transmission Date: 20160815
  Serious: Yes (Hospitalization, Other)
  Sender: FDA-Public Use
  Company Number: US-GLAXOSMITHKLINE-A1080667A

PATIENT
  Age: 56 Year
  Sex: Female

DRUGS (10)
  1. FLOLAN [Suspect]
     Active Substance: EPOPROSTENOL SODIUM
     Dosage: 81 NG/KG/MIN CONTINUOUSLY; CONCENTRATION 75,000 NG/ML; PUMP RATE 78 ML/DAY; VIAL STRENGTH 1.5 MG
     Route: 042
     Dates: start: 19990423
  2. SILDENAFIL CITRATE. [Concomitant]
     Active Substance: SILDENAFIL CITRATE
  3. FLOLAN [Suspect]
     Active Substance: EPOPROSTENOL SODIUM
     Dosage: 88 NG/KG/MIN, CO
     Route: 042
     Dates: start: 19991026
  4. COUMADIN [Concomitant]
     Active Substance: WARFARIN SODIUM
  5. FLOLAN [Suspect]
     Active Substance: EPOPROSTENOL SODIUM
     Dosage: 72 NG/KG/MIN, CONTINUOUSLY
     Route: 042
     Dates: start: 19991026
  6. FLOLAN [Suspect]
     Active Substance: EPOPROSTENOL SODIUM
     Indication: PULMONARY ARTERIAL HYPERTENSION
     Dosage: 77 NG/KG/MIN CONTINUOUSLY;CONCENTRATION 60,000 NG/ML;PUMP RATE 92 ML/DAYVIAL STRENGTH 1.5 MG
     Route: 042
     Dates: start: 19990423
  7. FLOLAN [Suspect]
     Active Substance: EPOPROSTENOL SODIUM
     Dosage: 81 NG/KG/MIN CONTINUOUSLY; CONCENTRATION 75,000 NG/ML; PUMP RATE 78 ML/DAY; VIAL STRENGTH 1.5 MG
     Route: 042
     Dates: start: 19990423
  8. TRACLEER [Concomitant]
     Active Substance: BOSENTAN
  9. OPSUMIT [Concomitant]
     Active Substance: MACITENTAN
  10. FLOLAN [Suspect]
     Active Substance: EPOPROSTENOL SODIUM
     Dosage: 83 NG/KG/MIN, CO
     Route: 042

REACTIONS (12)
  - Pulmonary arterial hypertension [Unknown]
  - Pain in jaw [Unknown]
  - Flushing [Unknown]
  - Rash [Unknown]
  - Fluid retention [Recovering/Resolving]
  - Dyspnoea [Not Recovered/Not Resolved]
  - Asthenia [Not Recovered/Not Resolved]
  - Pneumonia [Unknown]
  - Hospitalisation [Unknown]
  - Myalgia [Unknown]
  - Nasal congestion [Unknown]
  - Condition aggravated [Not Recovered/Not Resolved]

NARRATIVE: CASE EVENT DATE: 20150703
